FAERS Safety Report 4599556-8 (Version None)
Quarter: 2005Q1

REPORT INFORMATION
  Report Type: 
  Country: None (occurrence: None)
  Receive Date: 20050307
  Receipt Date: 20050228
  Transmission Date: 20050727
  Serious: Yes (Disabling)
  Sender: FDA-Public Use
  Company Number: 200511826GDDC

PATIENT
  Age: 63 Year
  Sex: Male

DRUGS (2)
  1. KETEK [Suspect]
     Indication: INFECTION
     Route: 048
     Dates: start: 20050222, end: 20050226
  2. AMPICILLIN [Concomitant]
     Indication: INFECTION

REACTIONS (2)
  - DIPLOPIA [None]
  - EYE PAIN [None]
